FAERS Safety Report 8456421-3 (Version None)
Quarter: 2012Q2

REPORT INFORMATION
  Report Type: 
  Country: None (occurrence: None)
  Receive Date: 20120621
  Receipt Date: 20120612
  Transmission Date: 20120825
  Serious: Yes (Other)
  Sender: FDA-Public Use
  Company Number: US-ROCHE-1078099

PATIENT
  Sex: Male

DRUGS (3)
  1. PEGASYS [Suspect]
     Indication: HEPATITIS C
     Route: 058
     Dates: start: 20120215
  2. RIBASPHERE [Suspect]
     Indication: HEPATITIS C
     Dosage: IN DIVIDED DOSES
     Route: 048
  3. VICTRELIS [Suspect]
     Indication: HEPATITIS C
     Route: 048
     Dates: start: 20120321

REACTIONS (6)
  - VERTIGO [None]
  - BLOOD PRESSURE DECREASED [None]
  - PHOTOPHOBIA [None]
  - FEELING ABNORMAL [None]
  - EYE HAEMORRHAGE [None]
  - DRUG DOSE OMISSION [None]
